FAERS Safety Report 5154230-4 (Version None)
Quarter: 2006Q4

REPORT INFORMATION
  Report Type: 
  Country: None (occurrence: None)
  Receive Date: 20061114
  Receipt Date: 20061027
  Transmission Date: 20070319
  Serious: Yes (Hospitalization)
  Sender: FDA-Public Use
  Company Number: 2006RR-04310

PATIENT
  Age: 85 Year
  Sex: Male

DRUGS (4)
  1. SIMVASTATIN [Suspect]
     Indication: MYOCARDIAL ISCHAEMIA
     Dosage: 20 MG, QD, ORAL
     Route: 048
     Dates: start: 20060920, end: 20061004
  2. DILTIAZEM [Suspect]
     Indication: MYOCARDIAL ISCHAEMIA
     Dosage: 120 MG, 1 DAYS, ORAL
     Route: 048
     Dates: start: 20060920, end: 20061004
  3. ALLOPURINOL [Concomitant]
  4. RAMIPRIL [Concomitant]

REACTIONS (2)
  - ERYTHEMA MULTIFORME [None]
  - SWELLING FACE [None]
